FAERS Safety Report 10648026 (Version 3)
Quarter: 2015Q1

REPORT INFORMATION
  Report Type: Report from Study
  Country: US (occurrence: US)
  Receive Date: 20141212
  Receipt Date: 20150114
  Transmission Date: 20150720
  Serious: Yes (Other)
  Sender: FDA-Public Use
  Company Number: US-TAKEDA-2014MPI003254

PATIENT
  Age: 60 Year

DRUGS (2)
  1. DEXAMETHASONE. [Suspect]
     Active Substance: DEXAMETHASONE
     Indication: PLASMA CELL MYELOMA
     Dosage: 40 MG, DAY 1 AND AT END OF CYCLE
     Route: 048
     Dates: start: 20091207, end: 20101018
  2. VELCADE [Suspect]
     Active Substance: BORTEZOMIB
     Indication: PLASMA CELL MYELOMA
     Dosage: 2.9 MG, 4 TIMES EVERY 3 WEEKS
     Route: 042
     Dates: start: 20091207, end: 20101018

REACTIONS (1)
  - Hypercoagulation [Unknown]

NARRATIVE: CASE EVENT DATE: 20100223
